FAERS Safety Report 9571998 (Version 1)
Quarter: 2013Q4

REPORT INFORMATION
  Report Type: Spontaneous
  Country: DE (occurrence: DE)
  Receive Date: 20131001
  Receipt Date: 20131001
  Transmission Date: 20140711
  Serious: Yes (Other)
  Sender: FDA-Public Use
  Company Number: DE-PFIZER INC-2013279134

PATIENT
  Age: 42 Year
  Sex: Female

DRUGS (1)
  1. LEIOS [Suspect]
     Dosage: UNK

REACTIONS (2)
  - Cystitis noninfective [Unknown]
  - Blood urine present [Unknown]
